FAERS Safety Report 24989216 (Version 1)
Quarter: 2025Q1

REPORT INFORMATION
  Report Type: Report from Study
  Country: CA (occurrence: CA)
  Receive Date: 20250220
  Receipt Date: 20250220
  Transmission Date: 20250408
  Serious: Yes (Other)
  Sender: CHIESI
  Company Number: CA-CHIESI-2023CHF03809

PATIENT
  Age: 56 Year
  Sex: Male
  Weight: 70.8 kg

DRUGS (3)
  1. DEFERIPRONE [Suspect]
     Active Substance: DEFERIPRONE
     Indication: Thalassaemia
     Dosage: 2000 MILLIGRAM, TID
     Route: 048
     Dates: start: 20221003
  2. DEFERIPRONE [Suspect]
     Active Substance: DEFERIPRONE
     Dosage: 3000 MILLIGRAM, TID
     Route: 048
  3. DEFERIPRONE [Suspect]
     Active Substance: DEFERIPRONE
     Dosage: UNK UNK, BID
     Route: 048
     Dates: start: 20231213

REACTIONS (7)
  - Pneumonia [Unknown]
  - Prescribed overdose [Not Recovered/Not Resolved]
  - Product dose omission issue [Unknown]
  - Prescribed overdose [Recovered/Resolved]
  - Off label use [Not Recovered/Not Resolved]
  - Off label use [Recovered/Resolved]
  - Product dose omission issue [Unknown]

NARRATIVE: CASE EVENT DATE: 20231213
